FAERS Safety Report 4784849-1 (Version None)
Quarter: 2005Q3

REPORT INFORMATION
  Report Type: 
  Country: None (occurrence: None)
  Receive Date: 20050929
  Receipt Date: 20050929
  Transmission Date: 20060218
  Serious: Yes (Life-Threatening, Hospitalization, Other)
  Sender: FDA-Public Use
  Company Number: None

PATIENT
  Age: 42 Year
  Sex: Female
  Weight: 56.6996 kg

DRUGS (1)
  1. GABITRIL [Suspect]
     Dosage: 8-12 MG/DAY /PO
     Route: 048
     Dates: start: 20030101, end: 20040101

REACTIONS (6)
  - BRAIN CONTUSION [None]
  - CONVULSION [None]
  - FALL [None]
  - GRAND MAL CONVULSION [None]
  - HEAD INJURY [None]
  - JOINT SPRAIN [None]
